FAERS Safety Report 9861354 (Version 15)
Quarter: 2016Q1

REPORT INFORMATION
  Report Type: Spontaneous
  Country: CA (occurrence: CA)
  Receive Date: 20140203
  Receipt Date: 20160315
  Transmission Date: 20160526
  Serious: Yes (Other)
  Sender: FDA-Public Use
  Company Number: CA-ROCHE-1327278

PATIENT
  Age: 58 Year
  Sex: Female
  Weight: 129 kg

DRUGS (12)
  1. XOLAIR [Suspect]
     Active Substance: OMALIZUMAB
     Route: 058
     Dates: start: 2014
  2. CORTISONE [Concomitant]
     Active Substance: CORTISONE\HYDROCORTISONE
  3. SYMBICORT [Concomitant]
     Active Substance: BUDESONIDE\FORMOTEROL FUMARATE DIHYDRATE
  4. PREDNISONE. [Concomitant]
     Active Substance: PREDNISONE
     Route: 065
     Dates: start: 20150612
  5. XOLAIR [Suspect]
     Active Substance: OMALIZUMAB
     Route: 058
     Dates: start: 20160308
  6. PREDNISONE. [Concomitant]
     Active Substance: PREDNISONE
     Route: 065
     Dates: end: 20140920
  7. XOLAIR [Suspect]
     Active Substance: OMALIZUMAB
     Indication: ASTHMA
     Route: 058
     Dates: start: 20130702
  8. XOLAIR [Suspect]
     Active Substance: OMALIZUMAB
     Route: 058
     Dates: start: 20130716
  9. XOLAIR [Suspect]
     Active Substance: OMALIZUMAB
     Route: 058
  10. XOLAIR [Suspect]
     Active Substance: OMALIZUMAB
     Route: 058
     Dates: start: 20150224
  11. VICTOZA [Suspect]
     Active Substance: LIRAGLUTIDE
     Indication: DIABETES MELLITUS
     Route: 065
     Dates: start: 201407
  12. ALVESCO [Concomitant]
     Active Substance: CICLESONIDE

REACTIONS (25)
  - Pharyngeal oedema [Unknown]
  - Heart rate increased [Unknown]
  - Pain [Unknown]
  - Fatigue [Unknown]
  - Hyperhidrosis [Unknown]
  - Malaise [Unknown]
  - Chest pain [Recovered/Resolved]
  - Dyspnoea [Not Recovered/Not Resolved]
  - Headache [Unknown]
  - Bronchitis [Recovering/Resolving]
  - Joint swelling [Unknown]
  - Diabetes mellitus inadequate control [Unknown]
  - Gastroenteritis [Unknown]
  - Back pain [Unknown]
  - Diabetes mellitus [Unknown]
  - Paraesthesia [Unknown]
  - Influenza [Unknown]
  - Respiratory tract infection [Not Recovered/Not Resolved]
  - Palpitations [Unknown]
  - Bone pain [Unknown]
  - Oropharyngeal pain [Unknown]
  - Weight decreased [Not Recovered/Not Resolved]
  - Pulmonary congestion [Unknown]
  - Secretion discharge [Unknown]
  - Arthralgia [Unknown]

NARRATIVE: CASE EVENT DATE: 20130702
